FAERS Safety Report 5629854-8 (Version None)
Quarter: 2008Q1

REPORT INFORMATION
  Report Type: 
  Country: None (occurrence: None)
  Receive Date: 20080218
  Receipt Date: 20080208
  Transmission Date: 20080703
  Serious: Yes (Hospitalization)
  Sender: FDA-Public Use
  Company Number: GB-ASTRAZENECA-2008GB00105

PATIENT
  Age: 26560 Day
  Sex: Male

DRUGS (16)
  1. ATENOLOL [Suspect]
     Dates: start: 20080110
  2. ATENOLOL [Suspect]
     Dates: end: 20080122
  3. AZD6140 CODE NOT BROKEN [Suspect]
     Indication: ACUTE CORONARY SYNDROME
     Route: 048
     Dates: start: 20080109
  4. ENOXAPARIN SODIUM [Concomitant]
     Dates: start: 20080109, end: 20080110
  5. ASPIRIN [Concomitant]
     Dates: start: 20080109
  6. SIMVASTATIN [Concomitant]
     Dates: start: 20080109
  7. DIAZEPAM [Concomitant]
     Dates: start: 20080109, end: 20080109
  8. NITROLINGUAL [Concomitant]
     Dates: start: 20080111
  9. MIDAZOLAM HCL [Concomitant]
     Dates: start: 20080111, end: 20080111
  10. LIGNOCAINE [Concomitant]
     Dates: start: 20080111, end: 20080111
  11. NITRONAL [Concomitant]
     Dates: start: 20080111, end: 20080111
  12. VERAPAMIL [Concomitant]
     Dates: start: 20080111, end: 20080111
  13. MORPHINE [Concomitant]
     Dates: start: 20080109, end: 20080109
  14. METOCLOPRAMIDE [Concomitant]
     Dates: start: 20080109, end: 20080109
  15. CLOPIDOGREL [Concomitant]
     Dates: start: 20080109, end: 20080109
  16. HEPARIN [Concomitant]
     Dates: start: 20080111, end: 20080111

REACTIONS (1)
  - CIRCULATORY COLLAPSE [None]
